FAERS Safety Report 9351556 (Version 2)
Quarter: 2013Q3

REPORT INFORMATION
  Report Type: Report from Study
  Country: JP (occurrence: JP)
  Receive Date: 20130617
  Receipt Date: 20130731
  Transmission Date: 20140515
  Serious: Yes (Other)
  Sender: FDA-Public Use
  Company Number: PHHY2013JP061398

PATIENT
  Sex: Female
  Weight: 60 kg

DRUGS (11)
  1. AFINITOR [Suspect]
     Indication: PANCREATIC NEUROENDOCRINE TUMOUR
     Dosage: 10 MG, DAILY
     Route: 048
     Dates: start: 20120120, end: 20121108
  2. PURSENIDE [Concomitant]
     Indication: PROPHYLAXIS
     Dosage: 36 MG
     Route: 048
  3. MEVALOTIN [Concomitant]
     Indication: PROPHYLAXIS
     Dosage: 10 MG
     Route: 048
     Dates: end: 20121205
  4. GLACTIV [Concomitant]
     Indication: PROPHYLAXIS
     Dosage: 12.5 MG
     Route: 048
  5. GLACTIV [Concomitant]
     Dosage: 12.5 MG
     Dates: end: 20121107
  6. LOCOID [Concomitant]
     Indication: PROPHYLAXIS
     Dosage: 5 G
     Dates: start: 20120816, end: 20120912
  7. KENALOG [Concomitant]
     Indication: PROPHYLAXIS
     Dosage: 5 MG
     Dates: start: 20120913, end: 20121010
  8. MAGLAX [Concomitant]
     Indication: PROPHYLAXIS
     Dosage: 990 MG
     Route: 048
     Dates: start: 20121011
  9. FERROMIA [Concomitant]
     Indication: PROPHYLAXIS
     Dosage: 100 MG
     Route: 048
     Dates: start: 20121011
  10. LAXOBERON [Concomitant]
     Indication: PROPHYLAXIS
     Dosage: 10 ML
     Route: 048
     Dates: start: 20121011, end: 20121011
  11. PRAZAXA [Concomitant]
     Indication: PROPHYLAXIS
     Dosage: 150 MG
     Route: 048
     Dates: start: 20121206

REACTIONS (2)
  - C-reactive protein increased [Unknown]
  - Haemoglobin decreased [Unknown]
